FAERS Safety Report 20584613 (Version 1)
Quarter: 2022Q1

REPORT INFORMATION
  Report Type: Spontaneous
  Country: US (occurrence: US)
  Receive Date: 20220311
  Receipt Date: 20220311
  Transmission Date: 20220423
  Serious: No
  Sender: FDA-Public Use
  Company Number: US-PFIZER INC-2021690819

PATIENT
  Age: 77 Year
  Sex: Female
  Weight: 83.91 kg

DRUGS (3)
  1. EXEMESTANE [Suspect]
     Active Substance: EXEMESTANE
     Indication: Breast cancer female
     Dosage: 25MG, 1 TABLET BY MOUTH ONCE DAILY
     Route: 048
  2. EXEMESTANE [Suspect]
     Active Substance: EXEMESTANE
     Indication: Antioestrogen therapy
  3. EXEMESTANE [Suspect]
     Active Substance: EXEMESTANE
     Indication: Hormone therapy

REACTIONS (5)
  - Insomnia [Not Recovered/Not Resolved]
  - Alopecia [Not Recovered/Not Resolved]
  - Bone loss [Not Recovered/Not Resolved]
  - Weight fluctuation [Unknown]
  - COVID-19 [Unknown]
